FAERS Safety Report 13943516 (Version 1)
Quarter: 2017Q3

REPORT INFORMATION
  Report Type: Spontaneous
  Country: US (occurrence: US)
  Receive Date: 20170907
  Receipt Date: 20170907
  Transmission Date: 20171128
  Serious: No
  Sender: FDA-Public Use
  Company Number: US-PFIZER INC-2017327063

PATIENT
  Age: 50 Year
  Sex: Female

DRUGS (1)
  1. IBRANCE [Suspect]
     Active Substance: PALBOCICLIB
     Indication: BREAST CANCER FEMALE
     Dosage: 100 MG, CYCLIC, (TAKE 1 CAPSULE BY MOUTH DAY 1 TO 21 EVERY 28 DAYS)
     Route: 048
     Dates: start: 201707

REACTIONS (3)
  - Migraine [Unknown]
  - Drug dose omission [Unknown]
  - Nausea [Unknown]
